FAERS Safety Report 5705709-5 (Version None)
Quarter: 2008Q2

REPORT INFORMATION
  Report Type: 
  Country: None (occurrence: None)
  Receive Date: 20080415
  Receipt Date: 20080408
  Transmission Date: 20081010
  Serious: Yes (Hospitalization)
  Sender: FDA-Public Use
  Company Number: A0721626A

PATIENT
  Age: 67 Year
  Sex: Male

DRUGS (10)
  1. RYTHMOL [Suspect]
     Indication: ARRHYTHMIA
     Dosage: 225MG TWICE PER DAY
     Route: 048
     Dates: start: 20070101
  2. KLOR-CON [Concomitant]
  3. LANOXIN [Concomitant]
  4. METOLAZONE [Concomitant]
  5. ROZEREM [Concomitant]
  6. AVODART [Concomitant]
  7. PROTONIX [Concomitant]
  8. STOOL SOFTENER [Concomitant]
  9. FUROSEMIDE [Concomitant]
  10. IRON [Concomitant]

REACTIONS (11)
  - ABDOMINAL DISTENSION [None]
  - ASTHENIA [None]
  - CARDIAC DISORDER [None]
  - DIARRHOEA [None]
  - DRUG INEFFECTIVE [None]
  - FATIGUE [None]
  - GASTRIC DISORDER [None]
  - MUSCULAR WEAKNESS [None]
  - PAIN [None]
  - RECTAL HAEMORRHAGE [None]
  - URINARY RETENTION [None]
